FAERS Safety Report 4592029-8 (Version None)
Quarter: 2005Q1

REPORT INFORMATION
  Report Type: 
  Country: None (occurrence: None)
  Receive Date: 20050125
  Receipt Date: 20041018
  Transmission Date: 20050727
  Serious: No
  Sender: FDA-Public Use
  Company Number: USA040362881

PATIENT

DRUGS (1)
  1. FORTEO [Suspect]
     Indication: OSTEOPOROSIS
     Dates: start: 20031201, end: 20040509

REACTIONS (7)
  - ARTHRALGIA [None]
  - ARTHRITIS [None]
  - FIBROMYALGIA [None]
  - MUSCLE INJURY [None]
  - MUSCLE SPASMS [None]
  - MYALGIA [None]
  - PAIN IN EXTREMITY [None]
